FAERS Safety Report 4833138-5 (Version None)
Quarter: 2005Q4

REPORT INFORMATION
  Report Type: 
  Country: None (occurrence: None)
  Receive Date: 20051117
  Receipt Date: 20051104
  Transmission Date: 20060501
  Serious: Yes (Life-Threatening, Other)
  Sender: FDA-Public Use
  Company Number: 2005151453

PATIENT
  Sex: Female
  Weight: 70.7611 kg

DRUGS (4)
  1. XALATAN [Suspect]
     Indication: GLAUCOMA
     Dosage: 1 DROP EACH EYE (1.5 MCG, QD INTERVAL: EVERY DAY), OPHTHALMIC
     Route: 047
     Dates: start: 20040101
  2. LOTREL [Concomitant]
  3. LIPITOR [Concomitant]
  4. HYDROCHLOROTHIAZIDE [Concomitant]

REACTIONS (6)
  - INCREASED UPPER AIRWAY SECRETION [None]
  - OVARIAN CANCER [None]
  - POSTNASAL DRIP [None]
  - STOMACH DISCOMFORT [None]
  - TREATMENT NONCOMPLIANCE [None]
  - WEIGHT DECREASED [None]
